FAERS Safety Report 24767127 (Version 3)
Quarter: 2025Q1

REPORT INFORMATION
  Report Type: Report from Study
  Country: CN (occurrence: CN)
  Receive Date: 20241223
  Receipt Date: 20250107
  Transmission Date: 20250409
  Serious: Yes (Hospitalization, Other)
  Sender: AMGEN
  Company Number: CN-AMGEN-CHNNI2024230662

PATIENT
  Age: 46 Year
  Sex: Female
  Weight: 60 kg

DRUGS (19)
  1. DENOSUMAB [Suspect]
     Active Substance: DENOSUMAB
     Indication: Bone cancer metastatic
     Dosage: UNK UNK, Q4WK
     Route: 058
     Dates: start: 20240729
  2. Bai mai [Concomitant]
     Route: 061
     Dates: start: 202207
  3. DIETARY SUPPLEMENT [Concomitant]
     Active Substance: DIETARY SUPPLEMENT
     Route: 048
     Dates: start: 202207
  4. FLURBIPROFEN [Concomitant]
     Active Substance: FLURBIPROFEN
     Route: 061
     Dates: start: 20240619
  5. MAGNESIUM ISOGLYCYRRHIZINATE [Concomitant]
     Active Substance: MAGNESIUM ISOGLYCYRRHIZINATE
     Route: 042
     Dates: start: 20240809, end: 20240812
  6. APREPITANT [Concomitant]
     Active Substance: APREPITANT
     Route: 048
     Dates: start: 20240810, end: 20240812
  7. BICYCLOL [Concomitant]
     Active Substance: BICYCLOL
     Route: 048
     Dates: start: 20240810, end: 20240812
  8. CISPLATIN [Concomitant]
     Active Substance: CISPLATIN
     Route: 042
     Dates: start: 20240810, end: 20240810
  9. DEXAMETHASONE ACETATE [Concomitant]
     Active Substance: DEXAMETHASONE ACETATE
     Route: 030
     Dates: start: 20240810, end: 20240812
  10. ESOMEPRAZOLE SODIUM [Concomitant]
     Active Substance: ESOMEPRAZOLE SODIUM
     Route: 042
     Dates: start: 20240810, end: 20240812
  11. FOSAPREPITANT DIMEGLUMINE [Concomitant]
     Active Substance: FOSAPREPITANT DIMEGLUMINE
     Route: 042
     Dates: start: 20240810, end: 20240810
  12. PACLITAXEL [Concomitant]
     Active Substance: PACLITAXEL
     Route: 042
     Dates: start: 20240810, end: 20240810
  13. TROPISETRON MESYLATE [Concomitant]
     Route: 042
     Dates: start: 20240810, end: 20240812
  14. ALPROSTADIL [Concomitant]
     Active Substance: ALPROSTADIL
     Route: 042
     Dates: start: 20240822, end: 20240902
  15. LACTULOSE [Concomitant]
     Active Substance: LACTULOSE
     Route: 048
     Dates: start: 20240830, end: 20240902
  16. INOSINE [Concomitant]
     Active Substance: INOSINE
     Route: 040
     Dates: start: 20240810, end: 20240812
  17. UNSPECIFIED INGREDIENT [Concomitant]
     Active Substance: UNSPECIFIED INGREDIENT
     Route: 040
     Dates: start: 20240809, end: 20240810
  18. COMPOUND MANNITOL [Concomitant]
     Route: 040
     Dates: start: 20240810, end: 20240812
  19. MOMETASONE FUROATE [Concomitant]
     Active Substance: MOMETASONE FUROATE
     Route: 061
     Dates: start: 20240926, end: 202410

REACTIONS (14)
  - Hypoaesthesia [Recovered/Resolved]
  - Drug-induced liver injury [Not Recovered/Not Resolved]
  - Hypokalaemia [Recovered/Resolved]
  - Hyperuricaemia [Recovered/Resolved]
  - Hyperuricaemia [Not Recovered/Not Resolved]
  - Hyponatraemia [Recovered/Resolved]
  - White blood cell count decreased [Recovered/Resolved]
  - White blood cell count decreased [Recovered/Resolved]
  - Dermatitis atopic [Recovered/Resolved]
  - Neutrophil count decreased [Recovered/Resolved]
  - Neutrophil count decreased [Recovered/Resolved]
  - Constipation [Recovered/Resolved]
  - Anaemia [Recovered/Resolved]
  - Back pain [Recovered/Resolved]

NARRATIVE: CASE EVENT DATE: 20240816
